FAERS Safety Report 25762976 (Version 1)
Quarter: 2025Q3

REPORT INFORMATION
  Report Type: Spontaneous
  Country: US (occurrence: US)
  Receive Date: 20250904
  Receipt Date: 20250904
  Transmission Date: 20251021
  Serious: No
  Sender: CELLTRION
  Company Number: US-CELLTRION INC.-2025US027141

PATIENT

DRUGS (4)
  1. ADALIMUMAB [Suspect]
     Active Substance: ADALIMUMAB
     Indication: Rheumatoid arthritis
     Dosage: 40 MG INJECTED SUBCUTANEOUSLY EVERY 2 WEEKS
     Route: 058
     Dates: start: 20250708
  2. ADALIMUMAB [Suspect]
     Active Substance: ADALIMUMAB
  3. CALCIUM [Concomitant]
     Active Substance: CALCIUM
  4. VITAMIN D NOS [Concomitant]
     Active Substance: CHOLECALCIFEROL\ERGOCALCIFEROL

REACTIONS (4)
  - Drug delivery system malfunction [Unknown]
  - Exposure via skin contact [Recovered/Resolved]
  - Accidental exposure to product [Recovered/Resolved]
  - Drug dose omission by device [Not Recovered/Not Resolved]

NARRATIVE: CASE EVENT DATE: 20250805
